FAERS Safety Report 17351884 (Version 1)
Quarter: 2020Q1

REPORT INFORMATION
  Report Type: Spontaneous
  Country: BR (occurrence: BR)
  Receive Date: 20200130
  Receipt Date: 20200130
  Transmission Date: 20200409
  Serious: Yes (Life-Threatening, Hospitalization, Other)
  Sender: FDA-Public Use
  Company Number: BR-ELI_LILLY_AND_COMPANY-BR202001012331

PATIENT
  Age: 56 Year
  Sex: Female

DRUGS (5)
  1. NOVOLIN N [Concomitant]
     Active Substance: INSULIN HUMAN
     Indication: PRODUCT USED FOR UNKNOWN INDICATION
  2. HUMULIN N [Suspect]
     Active Substance: INSULIN HUMAN
     Dosage: 28 U, EACH EVENING
     Route: 065
  3. HUMULIN N [Suspect]
     Active Substance: INSULIN HUMAN
     Indication: PRODUCT USED FOR UNKNOWN INDICATION
     Dosage: 104 U, EACH MORNING
     Route: 065
  4. HUMULIN R [Suspect]
     Active Substance: INSULIN HUMAN
     Indication: PRODUCT USED FOR UNKNOWN INDICATION
     Dosage: 52 U, TID
     Route: 065
  5. HUMULIN N [Suspect]
     Active Substance: INSULIN HUMAN
     Dosage: 56 U, OTHER
     Route: 065

REACTIONS (12)
  - Intellectual disability [Unknown]
  - Malignant peritoneal neoplasm [Unknown]
  - Hypertension [Unknown]
  - Diabetes mellitus inadequate control [Unknown]
  - Tremor [Unknown]
  - Injection site pain [Unknown]
  - Endometrial cancer [Unknown]
  - Systemic lupus erythematosus [Unknown]
  - Umbilical hernia [Unknown]
  - Ascites [Unknown]
  - Renal disorder [Unknown]
  - Speech disorder [Unknown]

NARRATIVE: CASE EVENT DATE: 2014
